FAERS Safety Report 4284891-3 (Version None)
Quarter: 2004Q1

REPORT INFORMATION
  Report Type: 
  Country: None (occurrence: None)
  Receive Date: 20040203
  Receipt Date: 20040203
  Transmission Date: 20041129
  Serious: Yes (Hospitalization)
  Sender: FDA-Public Use
  Company Number: None

PATIENT
  Age: 21 Year
  Sex: Female
  Weight: 49.8957 kg

DRUGS (1)
  1. WELLBUTRIN SR [Suspect]
     Indication: EX-SMOKER

REACTIONS (1)
  - CONVULSION [None]
